FAERS Safety Report 7150057-2 (Version None)
Quarter: 2010Q4

REPORT INFORMATION
  Report Type: 
  Country: None (occurrence: None)
  Receive Date: 20101210
  Receipt Date: 20101206
  Transmission Date: 20110411
  Serious: No
  Sender: FDA-Public Use
  Company Number: US-PFIZER INC-2010165462

PATIENT
  Sex: Female
  Weight: 74 kg

DRUGS (5)
  1. CHANTIX [Suspect]
     Indication: SMOKING CESSATION THERAPY
     Dosage: 0.5 MG, DAILY
     Route: 048
     Dates: start: 20101122
  2. CHANTIX [Suspect]
     Dosage: 1 MG, 2X/DAY
  3. LISINOPRIL [Concomitant]
     Indication: BLOOD PRESSURE ABNORMAL
     Dosage: UNK
  4. CELEXA [Concomitant]
     Indication: DEPRESSION
     Dosage: UNK
  5. KLONOPIN [Concomitant]
     Indication: INSOMNIA
     Dosage: UNK

REACTIONS (1)
  - INSOMNIA [None]
